FAERS Safety Report 8910983 (Version 2)
Quarter: 2012Q4

REPORT INFORMATION
  Report Type: 
  Country: TH (occurrence: TH)
  Receive Date: 20121116
  Receipt Date: 20121128
  Transmission Date: 20130627
  Serious: Yes (Hospitalization)
  Sender: FDA-Public Use
  Company Number: TH-ABBOTT-12P-155-1005930-00

PATIENT
  Sex: Female

DRUGS (6)
  1. KLACID [Suspect]
     Indication: LARYNGITIS
     Route: 048
     Dates: start: 20121102, end: 20121103
  2. KLACID [Suspect]
     Route: 048
     Dates: start: 20121103, end: 20121105
  3. UNSPECIFIED VASOCONSTRICTOR MEDICINE [Suspect]
     Indication: PRODUCT USED FOR UNKNOWN INDICATION
     Route: 048
     Dates: start: 20121103, end: 20121104
  4. DALACIN [Suspect]
     Indication: LARYNGITIS
     Route: 048
     Dates: start: 20121103, end: 20121105
  5. CLARINASE [Suspect]
     Indication: PRODUCT USED FOR UNKNOWN INDICATION
     Route: 048
     Dates: start: 20121030, end: 20121101
  6. CIPROBAY [Suspect]
     Indication: PRODUCT USED FOR UNKNOWN INDICATION
     Route: 048
     Dates: start: 20121101, end: 20121102

REACTIONS (9)
  - Palpitations [Recovered/Resolved]
  - Chest discomfort [Recovered/Resolved]
  - Fatigue [Recovered/Resolved]
  - Dysgeusia [Recovered/Resolved]
  - Oropharyngeal pain [Recovered/Resolved]
  - Pyrexia [Recovered/Resolved]
  - Asthenia [Recovered/Resolved]
  - Abdominal pain [Recovered/Resolved]
  - Laryngitis [Recovered/Resolved]
